FAERS Safety Report 15121878 (Version 2)
Quarter: 2018Q3

REPORT INFORMATION
  Report Type: Report from Study
  Country: DE (occurrence: DE)
  Receive Date: 20180709
  Receipt Date: 20180711
  Transmission Date: 20181010
  Serious: Yes (Hospitalization)
  Sender: FDA-Public Use
  Company Number: DE-PFIZER INC-2018004466

PATIENT
  Age: 80 Year
  Sex: Female
  Weight: 83 kg

DRUGS (29)
  1. DEXAMETHASONE. [Concomitant]
     Active Substance: DEXAMETHASONE
     Indication: PREMEDICATION
     Dosage: 20 MG, 1X/DAY
     Route: 042
     Dates: start: 20171228, end: 20171228
  2. PERFALGAN [Concomitant]
     Active Substance: ACETAMINOPHEN
     Indication: PREMEDICATION
     Dosage: 1 G, 1X/DAY
     Route: 042
     Dates: start: 20171229, end: 20171229
  3. ONDANSETRON [Concomitant]
     Active Substance: ONDANSETRON
     Indication: VOMITING
     Dosage: 8 MG, AS NEEDED
     Route: 048
     Dates: start: 20171229
  4. AVELUMAB [Suspect]
     Active Substance: AVELUMAB
     Dosage: 605 MG, UNK
     Route: 042
     Dates: start: 20171117, end: 20171117
  5. AVELUMAB [Suspect]
     Active Substance: AVELUMAB
     Dosage: 600 MG, UNK
     Route: 042
     Dates: start: 20171229, end: 20171229
  6. CARVEDILOL. [Concomitant]
     Active Substance: CARVEDILOL
     Indication: CARDIAC FAILURE
     Dosage: 12.5 MG, DAILY (0,5 DF 2X DAY)
     Route: 048
     Dates: start: 1997
  7. L?THYROXIN [Concomitant]
     Active Substance: LEVOTHYROXINE SODIUM
     Indication: GOITRE
     Dosage: 50 UG, 1X/DAY
     Route: 048
     Dates: start: 1997
  8. DEXAMETHASONE. [Concomitant]
     Active Substance: DEXAMETHASONE
     Indication: PROPHYLAXIS
     Dosage: 8 MG, 2X/DAY 1?0?1
     Route: 048
     Dates: start: 20171229, end: 20171230
  9. AVELUMAB [Suspect]
     Active Substance: AVELUMAB
     Dosage: 590 MG, UNK
     Route: 042
     Dates: start: 20171208, end: 20171208
  10. CARBOPLATIN. [Suspect]
     Active Substance: CARBOPLATIN
     Dosage: 399.2 MG, UNK
     Route: 042
     Dates: start: 20171116, end: 20171116
  11. TRAMADOL. [Concomitant]
     Active Substance: TRAMADOL
     Indication: SPINAL DISORDER
     Dosage: 200 MG, 2X/DAY
     Route: 048
     Dates: start: 1997
  12. ASS PROTECT [Concomitant]
     Indication: CARDIAC FAILURE
     Dosage: 100 MG, 1X/DAY
     Route: 048
     Dates: start: 1997
  13. ATORVASTATIN [Concomitant]
     Active Substance: ATORVASTATIN
     Indication: CARDIAC FAILURE
     Dosage: 50 MG, 0?0?1/2 DAILY
     Dates: start: 1997
  14. PARACETAMOL [Concomitant]
     Active Substance: ACETAMINOPHEN
     Indication: PROPHYLAXIS
     Dosage: 500 MG, 2X/DAY
     Route: 048
     Dates: start: 20171229, end: 20171230
  15. PANTOPRAZOLE [Concomitant]
     Active Substance: PANTOPRAZOLE
     Indication: PROPHYLAXIS
     Dosage: 40 MG DAILY
     Route: 048
     Dates: start: 20180105
  16. ENTRESTO [Concomitant]
     Active Substance: SACUBITRIL\VALSARTAN
     Indication: CARDIAC FAILURE
     Dosage: 49/51 MG, 1/4?0?1/4
     Route: 048
     Dates: start: 201708
  17. RANITIDIN [Concomitant]
     Active Substance: RANITIDINE HYDROCHLORIDE
     Indication: PREMEDICATION
     Dosage: 50 MG, 1X/DAY
     Route: 042
     Dates: start: 20171228, end: 20171228
  18. VOMEX A [Concomitant]
     Active Substance: DIMENHYDRINATE
     Indication: NAUSEA
     Dosage: 62 MG, SINGLE
     Route: 042
     Dates: start: 20180103, end: 20180103
  19. PANTOPRAZOLE [Concomitant]
     Active Substance: PANTOPRAZOLE
     Indication: NAUSEA
     Dosage: 40 MG, DAILY
     Route: 042
     Dates: start: 20180103, end: 20180104
  20. PACLITAXEL. [Suspect]
     Active Substance: PACLITAXEL
     Dosage: 290.5 MG, UNK
     Route: 042
     Dates: start: 20171228, end: 20171228
  21. CARBOPLATIN. [Suspect]
     Active Substance: CARBOPLATIN
     Dosage: 445.65 MG, UNK
     Route: 042
     Dates: start: 20171208, end: 20171208
  22. VOMEX [Concomitant]
     Active Substance: DIMENHYDRINATE
     Indication: VOMITING
     Dosage: 1 (UNK UNIT), AS NEEDED
  23. PACLITAXEL. [Suspect]
     Active Substance: PACLITAXEL
     Dosage: 288.75 MG, UNK
     Route: 042
     Dates: start: 20171207, end: 20171207
  24. CARBOPLATIN. [Suspect]
     Active Substance: CARBOPLATIN
     Dosage: 402.65 MG, UNK
     Route: 042
     Dates: start: 20171228, end: 20171228
  25. SPIRONOLACTON [Concomitant]
     Active Substance: SPIRONOLACTONE
     Indication: CARDIAC FAILURE
     Dosage: 25 MG, 0?1/2?0
     Route: 048
     Dates: start: 1997
  26. PACLITAXEL. [Suspect]
     Active Substance: PACLITAXEL
     Dosage: 290.5 MG, UNK
     Route: 042
     Dates: start: 20171116, end: 20171116
  27. CLEMASTINE [Concomitant]
     Active Substance: CLEMASTINE
     Indication: PREMEDICATION
     Dosage: 50 MG, 1X/DAY
     Route: 042
     Dates: start: 20171228, end: 20171228
  28. CLEXANE [Concomitant]
     Active Substance: ENOXAPARIN SODIUM
     Indication: PROPHYLAXIS
     Dosage: 40 MG, 1X/DAY
     Route: 058
     Dates: start: 20180103
  29. EMEND [Concomitant]
     Active Substance: APREPITANT
     Indication: PROPHYLAXIS
     Dosage: UNKNOWN MG 1X/DAY
     Route: 048
     Dates: start: 20171229, end: 20171230

REACTIONS (1)
  - General physical health deterioration [Recovered/Resolved]

NARRATIVE: CASE EVENT DATE: 20180103
